FAERS Safety Report 5113785-6 (Version None)
Quarter: 2006Q3

REPORT INFORMATION
  Report Type: 
  Country: None (occurrence: None)
  Receive Date: 20060925
  Receipt Date: 20060915
  Transmission Date: 20061208
  Serious: Yes (Hospitalization)
  Sender: FDA-Public Use
  Company Number: FR-NOVOPROD-257041

PATIENT
  Age: 70 Year
  Sex: Male
  Weight: 74 kg

DRUGS (8)
  1. NORDITROPIN SIMPLEXX [Suspect]
     Indication: GROWTH HORMONE DEFICIENCY
     Route: 058
     Dates: start: 20050706
  2. LEVOTHYROXINE SODIUM [Concomitant]
     Dosage: 150 MG, QD
     Route: 048
     Dates: start: 20060704
  3. HYDROCORTISONE [Concomitant]
     Dosage: 30 MG, QD
     Route: 048
     Dates: start: 20060220
  4. GARDENAL                           /00023201/ [Concomitant]
     Dosage: 50 MG, UNK
     Route: 048
     Dates: start: 19700101
  5. KARDEGIC                           /00002703/ [Concomitant]
     Dosage: 75 MG, QD
     Route: 048
     Dates: start: 20050101
  6. CORDARONE                          /00133101/ [Concomitant]
     Dates: start: 20050101
  7. COVERSYL                           /00790701/ [Concomitant]
     Dosage: 2 MG, QD
     Route: 048
     Dates: start: 20060221
  8. ANDROTARDYL [Concomitant]
     Dosage: 250 MG PER MONTH
     Dates: start: 19700101

REACTIONS (1)
  - BASAL CELL CARCINOMA [None]
